FAERS Safety Report 5930182-1 (Version None)
Quarter: 2008Q4

REPORT INFORMATION
  Report Type: 
  Country: None (occurrence: None)
  Receive Date: 20081024
  Receipt Date: 20081014
  Transmission Date: 20090506
  Serious: Yes (Hospitalization)
  Sender: FDA-Public Use
  Company Number: FR-PFIZER INC-2008087163

PATIENT
  Sex: Female

DRUGS (9)
  1. TAHOR [Suspect]
     Indication: HYPERCHOLESTEROLAEMIA
     Route: 048
     Dates: start: 20080729, end: 20080824
  2. BUFLOMEDIL [Suspect]
     Indication: ARTERIAL DISORDER
     Dates: start: 20080708, end: 20080824
  3. KARDEGIC [Suspect]
     Route: 048
     Dates: start: 20080708, end: 20080824
  4. SERESTA [Concomitant]
     Route: 048
  5. HYDROCHLOROTHIAZIDE [Concomitant]
     Route: 048
  6. DI-ANTALVIC [Concomitant]
     Route: 048
  7. STEROGYL [Concomitant]
     Route: 048
  8. DAFLON [Concomitant]
     Route: 048
  9. CALCIDOSE [Concomitant]
     Route: 048

REACTIONS (4)
  - ERYTHEMA [None]
  - FACE OEDEMA [None]
  - FEELING HOT [None]
  - PRURITUS [None]
